FAERS Safety Report 8507823-8 (Version None)
Quarter: 2012Q3

REPORT INFORMATION
  Report Type: 
  Country: None (occurrence: None)
  Receive Date: 20120713
  Receipt Date: 20120710
  Transmission Date: 20120928
  Serious: Yes (Life-Threatening)
  Sender: FDA-Public Use
  Company Number: PHHY2012BR059525

PATIENT
  Sex: Female

DRUGS (8)
  1. TOPIRAMATE [Suspect]
     Indication: CONVULSION
     Dosage: 25 MG, 2 TABLETS A DAY (IN THE MORNING AND 1 TABLET IN THE AFTERNOON)
     Route: 048
     Dates: start: 20120602
  2. TEGRETOL [Suspect]
     Indication: EPILEPSY
     Dosage: 400 MG, 1 TABLET A DAY (AT NIGHT)
     Route: 048
     Dates: start: 20000101, end: 20110101
  3. FOLIC ACID [Concomitant]
  4. TORVAL [Suspect]
     Indication: EPILEPSY
     Dosage: 1 DF,A DAY
     Route: 048
     Dates: start: 20110101
  5. TOPIRAMATE [Suspect]
     Dosage: 100 MG, 1 TABLET A DAY
  6. CLONAZEPAM [Concomitant]
     Dosage: 2.5 MG, 5 DROPS AT NIGHT
     Route: 049
  7. ALPRAZOLAM [Concomitant]
     Indication: SLEEP DISORDER
     Dosage: 2 MG, 1 TABLET AT NIGHT
     Route: 048
  8. TEGRETOL [Suspect]
     Dosage: 200 MG, 2 TABLETS A DAY (EVERY 12 HOURS)
     Route: 048
     Dates: start: 20120705

REACTIONS (18)
  - FEELING ABNORMAL [None]
  - FEELING HOT [None]
  - ANAL HAEMORRHAGE [None]
  - CHILLS [None]
  - FEELING OF DESPAIR [None]
  - PYREXIA [None]
  - DIARRHOEA [None]
  - COLD SWEAT [None]
  - CRYING [None]
  - CONVULSION [None]
  - PARAESTHESIA [None]
  - HYPOAESTHESIA [None]
  - PAIN [None]
  - MEMORY IMPAIRMENT [None]
  - CHEST PAIN [None]
  - TREMOR [None]
  - INSOMNIA [None]
  - DIZZINESS [None]
